FAERS Safety Report 25368563 (Version 4)
Quarter: 2025Q3

REPORT INFORMATION
  Report Type: Spontaneous
  Country: JP (occurrence: JP)
  Receive Date: 20250528
  Receipt Date: 20250724
  Transmission Date: 20251020
  Serious: Yes (Other)
  Sender: PFIZER
  Company Number: JP-PFIZER INC-PV202500062915

PATIENT
  Age: 72 Year
  Sex: Female

DRUGS (1)
  1. ELREXFIO [Suspect]
     Active Substance: ELRANATAMAB-BCMM
     Indication: Plasma cell myeloma refractory
     Route: 058

REACTIONS (3)
  - Cytokine release syndrome [Recovered/Resolved]
  - Cholangitis acute [Recovering/Resolving]
  - Hypotension [Recovered/Resolved]
